FAERS Safety Report 9222553 (Version 3)
Quarter: 2013Q3

REPORT INFORMATION
  Report Type: Spontaneous
  Country: JP (occurrence: JP)
  Receive Date: 20130410
  Receipt Date: 20130805
  Transmission Date: 20140515
  Serious: Yes (Hospitalization, Other)
  Sender: FDA-Public Use
  Company Number: JP-PFIZER INC-2013108806

PATIENT
  Age: 65 Year
  Sex: Male
  Weight: 47.5 kg

DRUGS (8)
  1. INLYTA [Suspect]
     Indication: RENAL CANCER METASTATIC
     Dosage: 5 MG, 2X/DAY
     Route: 048
     Dates: start: 20130110, end: 20130220
  2. INLYTA [Suspect]
     Dosage: 7 MG, 2X/DAY
     Route: 048
     Dates: start: 20130221, end: 20130323
  3. AFINITOR [Suspect]
     Indication: RENAL CANCER
     Dosage: 10 MG, 1X/DAY
     Route: 048
     Dates: start: 20120516, end: 20120527
  4. AFINITOR [Suspect]
     Dosage: 5 MG, 1X/DAY
     Route: 048
     Dates: start: 20120614, end: 20130109
  5. CALBLOCK [Concomitant]
     Indication: HYPERTENSION
     Dosage: 8 MG, 1X/DAY
     Route: 048
     Dates: start: 20111005, end: 20111026
  6. CALBLOCK [Concomitant]
     Dosage: 16 MG, 1X/DAY
     Route: 048
     Dates: start: 20111027, end: 20130330
  7. NU LOTAN [Concomitant]
     Indication: HYPERTENSION
     Dosage: 50 MG, 1X/DAY
     Route: 048
     Dates: start: 20111110, end: 20120104
  8. NU LOTAN [Concomitant]
     Dosage: 100 MG, 1X/DAY
     Route: 048
     Dates: start: 20120105, end: 20130330

REACTIONS (1)
  - Cardiac failure [Recovering/Resolving]
